FAERS Safety Report 12267662 (Version 1)
Quarter: 2016Q2

REPORT INFORMATION
  Report Type: Spontaneous
  Country: US (occurrence: US)
  Receive Date: 20160414
  Receipt Date: 20160414
  Transmission Date: 20160815
  Serious: No
  Sender: FDA-Public Use
  Company Number: US-GALDERMA-US16000843

PATIENT
  Sex: Male

DRUGS (2)
  1. UNKNOWN MOISTURIZER AND SUNSCREEN [Concomitant]
     Route: 061
  2. SOOLANTRA [Suspect]
     Active Substance: IVERMECTIN
     Dosage: 1%
     Route: 061

REACTIONS (2)
  - Rosacea [Unknown]
  - Skin reaction [Unknown]
